FAERS Safety Report 6601239-7 (Version None)
Quarter: 2010Q1

REPORT INFORMATION
  Report Type: 
  Country: None (occurrence: None)
  Receive Date: 20100225
  Receipt Date: 20100219
  Transmission Date: 20100710
  Serious: Yes (Death, Other)
  Sender: FDA-Public Use
  Company Number: DE-CELGENEUS-062-50794-09111413

PATIENT
  Age: 54 Year
  Sex: Male

DRUGS (3)
  1. VIDAZA [Suspect]
     Route: 050
     Dates: start: 20090821, end: 20091001
  2. VIDAZA [Suspect]
  3. CIPROFLOXACIN [Concomitant]
     Indication: DRUG USE FOR UNKNOWN INDICATION
     Route: 065

REACTIONS (4)
  - CELLULITIS [None]
  - PNEUMONIA [None]
  - SEPSIS [None]
  - SEPTIC SHOCK [None]
